FAERS Safety Report 18810788 (Version 5)
Quarter: 2023Q4

REPORT INFORMATION
  Report Type: Report from Study
  Country: CA (occurrence: CA)
  Receive Date: 20210129
  Receipt Date: 20231101
  Transmission Date: 20240109
  Serious: Yes (Hospitalization, Other)
  Sender: FDA-Public Use
  Company Number: CA-JNJFOC-20201051266

PATIENT
  Age: 60 Year
  Sex: Male
  Weight: 122 kg

DRUGS (9)
  1. REMICADE [Suspect]
     Active Substance: INFLIXIMAB
     Indication: Sarcoidosis
     Dosage: IN PAST DRUG WAS DISCONTINUED IN OCT-2021.
     Route: 041
     Dates: start: 20160628
  2. REMICADE [Suspect]
     Active Substance: INFLIXIMAB
     Route: 041
     Dates: end: 20211101
  3. REMICADE [Suspect]
     Active Substance: INFLIXIMAB
     Dosage: FOR FIRST 2 DOSES
     Route: 041
     Dates: end: 20211101
  4. REMICADE [Suspect]
     Active Substance: INFLIXIMAB
     Dosage: FOR FIRST 2 DOSES?EVERY 4 WEEKS
     Route: 041
     Dates: end: 20211101
  5. REMICADE [Suspect]
     Active Substance: INFLIXIMAB
     Route: 041
     Dates: start: 20231030
  6. LEVOTHYROXINE [Concomitant]
     Active Substance: LEVOTHYROXINE
     Indication: Product used for unknown indication
     Route: 065
  7. COLCHICINE [Concomitant]
     Active Substance: COLCHICINE
     Indication: Product used for unknown indication
     Route: 065
  8. CRESTOR [Concomitant]
     Active Substance: ROSUVASTATIN CALCIUM
     Indication: Product used for unknown indication
     Route: 065
  9. PERINDOPRIL [Concomitant]
     Active Substance: PERINDOPRIL
     Indication: Product used for unknown indication
     Route: 065

REACTIONS (6)
  - Transient ischaemic attack [Recovered/Resolved]
  - Angina pectoris [Recovered/Resolved]
  - Chest pain [Not Recovered/Not Resolved]
  - COVID-19 [Recovered/Resolved]
  - Abdominal pain upper [Unknown]
  - Off label use [Unknown]

NARRATIVE: CASE EVENT DATE: 20160628
